FAERS Safety Report 23313464 (Version 1)
Quarter: 2023Q4

REPORT INFORMATION
  Report Type: Spontaneous
  Country: US (occurrence: US)
  Receive Date: 20231219
  Receipt Date: 20231219
  Transmission Date: 20240110
  Serious: No
  Sender: FDA-Public Use
  Company Number: US-SA-SAC20231215001283

PATIENT
  Sex: Male
  Weight: 56 kg

DRUGS (1)
  1. DUPIXENT [Suspect]
     Active Substance: DUPILUMAB
     Indication: Dermatitis
     Dosage: 300 MG , EVERY 14 DAYS
     Route: 058

REACTIONS (2)
  - Memory impairment [Unknown]
  - Product use in unapproved indication [Unknown]
